FAERS Safety Report 5479989-8 (Version None)
Quarter: 2007Q4

REPORT INFORMATION
  Report Type: 
  Country: None (occurrence: None)
  Receive Date: 20071008
  Receipt Date: 20070926
  Transmission Date: 20080405
  Serious: Yes (Death)
  Sender: FDA-Public Use
  Company Number: US-PFIZER INC-2007060375

PATIENT
  Age: 14 Year
  Sex: Male

DRUGS (1)
  1. ANTITHYMOCYTE IMMUNOGLOBULIN SOLUTION, STERILE [Suspect]
     Indication: BRUTON'S AGAMMAGLOBULINAEMIA

REACTIONS (1)
  - PARKINSONISM [None]
